FAERS Safety Report 11415038 (Version 1)
Quarter: 2015Q3

REPORT INFORMATION
  Report Type: Report from Study
  Country: AR (occurrence: AR)
  Receive Date: 20150825
  Receipt Date: 20150825
  Transmission Date: 20151125
  Serious: Yes (Other)
  Sender: FDA-Public Use
  Company Number: PHHY2015AR101594

PATIENT
  Sex: Female

DRUGS (1)
  1. DIOVAN [Suspect]
     Active Substance: VALSARTAN
     Indication: HYPERTENSION
     Dosage: 0.5 DF, QD
     Route: 065

REACTIONS (3)
  - Blood pressure decreased [Unknown]
  - Femur fracture [Unknown]
  - Wrong technique in product usage process [Unknown]
